FAERS Safety Report 23472654 (Version 6)
Quarter: 2024Q2

REPORT INFORMATION
  Report Type: Report from Study
  Country: US (occurrence: US)
  Receive Date: 20240202
  Receipt Date: 20240608
  Transmission Date: 20240716
  Serious: Yes (Other)
  Sender: FDA-Public Use
  Company Number: US-002147023-NVSC2024US000692

PATIENT
  Sex: Female

DRUGS (4)
  1. KESIMPTA [Suspect]
     Active Substance: OFATUMUMAB
     Indication: Multiple sclerosis
     Dosage: UNK
     Route: 065
  2. KESIMPTA [Suspect]
     Active Substance: OFATUMUMAB
     Dosage: UNK (3 WEEKLY DOSES)
     Route: 065
  3. KESIMPTA [Suspect]
     Active Substance: OFATUMUMAB
     Dosage: 20 MG
     Route: 065
  4. KESIMPTA [Suspect]
     Active Substance: OFATUMUMAB
     Dosage: 20 MG, QMO
     Route: 058

REACTIONS (20)
  - Multiple sclerosis [Unknown]
  - Yawning [Unknown]
  - Taste disorder [Unknown]
  - Cognitive disorder [Unknown]
  - Asthenia [Unknown]
  - Fatigue [Unknown]
  - Somnolence [Unknown]
  - Dyspnoea [Unknown]
  - Dysarthria [Unknown]
  - Mobility decreased [Unknown]
  - Muscular weakness [Unknown]
  - Insomnia [Unknown]
  - Memory impairment [Unknown]
  - Hypoacusis [Unknown]
  - Aggression [Unknown]
  - Headache [Unknown]
  - Hypoaesthesia [Unknown]
  - Pigmentation disorder [Unknown]
  - Stress [Unknown]
  - Migraine [Unknown]
